FAERS Safety Report 24153741 (Version 1)
Quarter: 2024Q3

REPORT INFORMATION
  Report Type: Spontaneous
  Country: US (occurrence: None)
  Receive Date: 20240729
  Receipt Date: 20240729
  Transmission Date: 20241016
  Serious: Yes (Other)
  Sender: Public
  Company Number: None

PATIENT
  Age: 24 Year
  Sex: Male
  Weight: 111.13 kg

DRUGS (3)
  1. CANNABIDIOL\HERBALS [Suspect]
     Active Substance: CANNABIDIOL\HERBALS
  2. .DELTA.9-TETRAHYDROCANNABINOL ACETATE\HERBALS [Suspect]
     Active Substance: .DELTA.9-TETRAHYDROCANNABINOL ACETATE\HERBALS
  3. AMOUR CBD [Suspect]
     Active Substance: LIDOCAINE HYDROCHLORIDE

REACTIONS (1)
  - Product contamination chemical [None]

NARRATIVE: CASE EVENT DATE: 20240723
